FAERS Safety Report 7598597-6 (Version None)
Quarter: 2011Q3

REPORT INFORMATION
  Report Type: 
  Country: None (occurrence: None)
  Receive Date: 20110710
  Receipt Date: 20110630
  Transmission Date: 20111222
  Serious: Yes (Death)
  Sender: FDA-Public Use
  Company Number: JP-AMGEN-JPNCT2011009995

PATIENT
  Age: 56 Year
  Sex: Male
  Weight: 109 kg

DRUGS (19)
  1. LEUCOVORIN CALCIUM [Concomitant]
     Indication: COLORECTAL CANCER
     Route: 041
     Dates: start: 20101019, end: 20110128
  2. DERMOSOL [Concomitant]
     Route: 062
  3. PANITUMUMAB [Suspect]
     Dosage: 6 MG/KG, Q2WK
     Route: 041
     Dates: start: 20110126, end: 20110126
  4. AMLODIPINE [Concomitant]
     Dosage: 5 MG, QD
     Route: 048
  5. FLUOROURACIL [Concomitant]
     Indication: COLORECTAL CANCER
     Dosage: 800 MG, UNK
     Route: 040
     Dates: start: 20101019, end: 20110128
  6. PANITUMUMAB [Suspect]
     Dosage: 6 MG/KG, Q2WK
     Route: 041
     Dates: start: 20101215, end: 20101215
  7. DIOVAN [Concomitant]
     Dosage: 80 MG, QD
     Route: 048
  8. MINOCYCLINE HCL [Concomitant]
     Route: 048
  9. NOVOLIN R [Concomitant]
     Route: 042
  10. OXALIPLATIN [Concomitant]
     Indication: COLORECTAL CANCER
     Dosage: 170 MG, Q2WK
     Route: 041
     Dates: start: 20101019, end: 20110128
  11. FLUOROURACIL [Concomitant]
     Route: 041
     Dates: start: 20101019, end: 20110128
  12. CORTICOSTEROIDS [Concomitant]
     Indication: PROPHYLAXIS
     Route: 065
  13. KERABENS [Concomitant]
     Route: 062
  14. KETOBUN A [Concomitant]
     Route: 048
  15. MEVATORTE [Concomitant]
     Dosage: 10 MG, QD
     Route: 048
  16. PANITUMUMAB [Suspect]
     Indication: COLORECTAL CANCER METASTATIC
     Dosage: 6 MG/KG, Q2WK
     Route: 041
     Dates: start: 20101019, end: 20101122
  17. BAYSLOWTH [Concomitant]
     Route: 048
  18. ANTIHISTAMINES [Concomitant]
     Indication: PROPHYLAXIS
     Route: 065
  19. FOLIROMIN [Concomitant]
     Dosage: 1 DF, QD
     Route: 048

REACTIONS (3)
  - DRY SKIN [None]
  - MYOCARDIAL ISCHAEMIA [None]
  - DERMATITIS ACNEIFORM [None]
